FAERS Safety Report 9247951 (Version 2)
Quarter: 2014Q1

REPORT INFORMATION
  Report Type: Spontaneous
  Country: US (occurrence: US)
  Receive Date: 20130423
  Receipt Date: 20140114
  Transmission Date: 20141002
  Serious: Yes (Hospitalization, Disabling)
  Sender: FDA-Public Use
  Company Number: US-ASTRAZENECA-2013SE27241

PATIENT
  Age: 43 Year
  Sex: Female
  Weight: 59 kg

DRUGS (16)
  1. NEXIUM [Suspect]
     Indication: GASTROOESOPHAGEAL REFLUX DISEASE
     Route: 048
     Dates: start: 2005, end: 2011
  2. NEXIUM [Suspect]
     Indication: GASTROOESOPHAGEAL REFLUX DISEASE
     Route: 048
     Dates: start: 200810, end: 201111
  3. NEXIUM [Suspect]
     Indication: GASTROOESOPHAGEAL REFLUX DISEASE
     Route: 048
     Dates: start: 20081008
  4. CARISOPRODOL [Concomitant]
     Dates: start: 20081003
  5. CIPROFLOXACIN [Concomitant]
     Dates: start: 20081008
  6. APA/HYDROCODONE [Concomitant]
     Dates: start: 20081021
  7. NICOTINE [Concomitant]
     Dates: start: 20081211
  8. ALPRAZOLAM [Concomitant]
     Dates: start: 20090105
  9. ENDOCET [Concomitant]
     Dosage: 10-325 MG
     Dates: start: 20090105
  10. LORATADINE [Concomitant]
     Dates: start: 20090331
  11. FLUCONAZOLE [Concomitant]
     Dosage: 10-325 MG
     Dates: start: 20090331
  12. PHENAZOPYRIDINE [Concomitant]
     Dates: start: 20090420
  13. LIPITOR [Concomitant]
     Dates: start: 20090504
  14. CALCIUM [Concomitant]
     Dates: start: 20101207
  15. ABILIFY [Concomitant]
     Dates: start: 20110117
  16. ALENDRONATE SODIUM [Concomitant]
     Dates: start: 20101012

REACTIONS (8)
  - Foot fracture [Unknown]
  - Intervertebral disc protrusion [Unknown]
  - Atrioventricular block [Unknown]
  - Osteoporosis [Unknown]
  - Bone disorder [Unknown]
  - Nephrolithiasis [Unknown]
  - Osteopenia [Unknown]
  - Arthralgia [Unknown]
